FAERS Safety Report 24749755 (Version 2)
Quarter: 2025Q2

REPORT INFORMATION
  Report Type: Report from Study
  Country: DE (occurrence: DE)
  Receive Date: 20241218
  Receipt Date: 20250514
  Transmission Date: 20250716
  Serious: Yes (Hospitalization, Disabling)
  Sender: SAMSUNG BIOEPIS
  Company Number: DE-SAMSUNG BIOEPIS-SB-2024-38001

PATIENT
  Age: 72 Year
  Sex: Female

DRUGS (5)
  1. IMRALDI [Suspect]
     Active Substance: ADALIMUMAB
     Indication: Rheumatoid arthritis
  2. METHOTREXATE [Concomitant]
     Active Substance: METHOTREXATE
     Indication: Product used for unknown indication
  3. LEVOTHYROXINE SODIUM\POTASSIUM IODIDE [Concomitant]
     Active Substance: LEVOTHYROXINE SODIUM\POTASSIUM IODIDE
     Indication: Product used for unknown indication
  4. LERCANIDIPINA [LERCANIDIPINE] [Concomitant]
     Indication: Hypertension
  5. ENALAPRIL [Concomitant]
     Active Substance: ENALAPRIL
     Indication: Hypertension

REACTIONS (1)
  - Cerebral infarction [Not Recovered/Not Resolved]

NARRATIVE: CASE EVENT DATE: 20240701
